FAERS Safety Report 22010326 (Version 4)
Quarter: 2023Q2

REPORT INFORMATION
  Report Type: Report from Study
  Country: US (occurrence: US)
  Receive Date: 20230220
  Receipt Date: 20230425
  Transmission Date: 20230722
  Serious: No
  Sender: FDA-Public Use
  Company Number: US-002147023-NVSC2023US035004

PATIENT
  Sex: Female

DRUGS (1)
  1. ENTRESTO [Suspect]
     Active Substance: SACUBITRIL\VALSARTAN
     Indication: Product used for unknown indication
     Dosage: 1 DOSAGE FORM, BID (24/26 MG)
     Route: 048
     Dates: start: 202207

REACTIONS (7)
  - Stress [Unknown]
  - Abdominal distension [Unknown]
  - Fluid retention [Unknown]
  - Weight loss poor [Unknown]
  - Fatigue [Unknown]
  - Cough [Unknown]
  - Hypersensitivity [Unknown]
